FAERS Safety Report 7651262-9 (Version None)
Quarter: 2011Q3

REPORT INFORMATION
  Report Type: 
  Country: None (occurrence: None)
  Receive Date: 20110802
  Receipt Date: 20110728
  Transmission Date: 20111222
  Serious: Yes (Hospitalization)
  Sender: FDA-Public Use
  Company Number: ES-CEPHALON-2011000507

PATIENT
  Sex: Female
  Weight: 55 kg

DRUGS (11)
  1. RASILEZ [Concomitant]
  2. MOVICOLON [Concomitant]
  3. TORSEMIDE [Concomitant]
  4. TOLTERODINE TARTRATE [Concomitant]
  5. FLUVASTATIN [Concomitant]
  6. OMEPRAZOLE [Concomitant]
  7. MYCOPHENOLATE MOFETIL [Concomitant]
  8. BENDAMUSTINE HCL [Suspect]
     Indication: B-CELL LYMPHOMA
     Route: 042
     Dates: start: 20100129, end: 20101130
  9. RITUXIMAB [Suspect]
     Indication: B-CELL LYMPHOMA
     Route: 042
     Dates: start: 20100129, end: 20101130
  10. TEVETEN [Concomitant]
  11. LORAZEPAM [Concomitant]

REACTIONS (1)
  - CYTOMEGALOVIRUS ENTERITIS [None]
